FAERS Safety Report 14132715 (Version 1)
Quarter: 2017Q4

REPORT INFORMATION
  Report Type: Spontaneous
  Country: CN (occurrence: CN)
  Receive Date: 20171026
  Receipt Date: 20171026
  Transmission Date: 20180321
  Serious: Yes (Hospitalization, Other)
  Sender: FDA-Public Use
  Company Number: CN-B.I. PHARMACEUTICALS,INC./RIDGEFIELD-2017-BI-057317

PATIENT
  Age: 80 Year
  Sex: Female

DRUGS (3)
  1. SALVIA OFFICINALIS LEAF [Concomitant]
     Active Substance: SAGE
     Indication: PRODUCT USED FOR UNKNOWN INDICATION
     Route: 065
  2. RECOMBINANT INSULIN GLARGINE INJECTION [Concomitant]
     Indication: DIABETES MELLITUS
     Route: 065
  3. TRAJENTA [Suspect]
     Active Substance: LINAGLIPTIN
     Indication: DIABETES MELLITUS
     Route: 048

REACTIONS (2)
  - Myalgia [Recovered/Resolved with Sequelae]
  - Blood glucose decreased [Recovered/Resolved]
